FAERS Safety Report 10950505 (Version 3)
Quarter: 2015Q2

REPORT INFORMATION
  Report Type: Spontaneous
  Country: US (occurrence: US)
  Receive Date: 20150324
  Receipt Date: 20150401
  Transmission Date: 20150821
  Serious: Yes (Death, Life-Threatening, Hospitalization, Other)
  Sender: FDA-Public Use
  Company Number: US-MERCK-1503USA011453

PATIENT
  Sex: Male
  Weight: 58.96 kg

DRUGS (2)
  1. JANUMET [Suspect]
     Active Substance: METFORMIN HYDROCHLORIDE\SITAGLIPTIN PHOSPHATE
     Indication: TYPE 2 DIABETES MELLITUS
     Dosage: 50 / 500 MG, BID
     Route: 048
     Dates: start: 20111116, end: 20130119
  2. JANUVIA [Suspect]
     Active Substance: SITAGLIPTIN PHOSPHATE
     Indication: TYPE 2 DIABETES MELLITUS
     Dosage: 100 MG, QD
     Route: 048
     Dates: start: 20100514, end: 20130111

REACTIONS (16)
  - Acute kidney injury [Recovering/Resolving]
  - Hypertension [Unknown]
  - Asthma [Unknown]
  - Pancreatic carcinoma metastatic [Unknown]
  - Hepatic steatosis [Unknown]
  - Death [Fatal]
  - Cerebrovascular accident [Unknown]
  - Small intestinal obstruction [Unknown]
  - Lobar pneumonia [Unknown]
  - Dysphagia [Unknown]
  - Renal mass [Unknown]
  - Gastrooesophageal reflux disease [Unknown]
  - Nephropathy [Unknown]
  - Metastases to peritoneum [Unknown]
  - Peritonitis bacterial [Unknown]
  - Constipation [Unknown]

NARRATIVE: CASE EVENT DATE: 201206
